FAERS Safety Report 4346256-5 (Version None)
Quarter: 2004Q2

REPORT INFORMATION
  Report Type: 
  Country: None (occurrence: None)
  Receive Date: 20040423
  Receipt Date: 20040423
  Transmission Date: 20050107
  Serious: Yes (Hospitalization)
  Sender: FDA-Public Use
  Company Number: None

PATIENT
  Sex: Male
  Weight: 95 kg

DRUGS (4)
  1. NITROFURANTOIN [Suspect]
     Indication: PROPHYLAXIS
     Dosage: 100 MG PO DAILY
     Route: 048
  2. NITROFURANTOIN [Suspect]
     Indication: URINARY TRACT INFECTION
     Dosage: 100 MG PO DAILY
     Route: 048
  3. PHENAZOPYRIDINE HCL TAB [Suspect]
  4. CEFIDINIR [Concomitant]

REACTIONS (5)
  - ARTHRALGIA [None]
  - CHILLS [None]
  - LIVER FUNCTION TEST ABNORMAL [None]
  - MYALGIA [None]
  - PYREXIA [None]
